FAERS Safety Report 6126994-4 (Version None)
Quarter: 2009Q1

REPORT INFORMATION
  Report Type: 
  Country: None (occurrence: None)
  Receive Date: 20090320
  Receipt Date: 20090311
  Transmission Date: 20090719
  Serious: Yes (Other)
  Sender: FDA-Public Use
  Company Number: IE-MERCK-0810GBR00147M

PATIENT
  Age: 23 Year
  Sex: Female

DRUGS (4)
  1. JANUVIA [Suspect]
     Indication: DIABETES MELLITUS
     Route: 048
     Dates: start: 20071106, end: 20071211
  2. INSULIN ASPART, BIPHASIC ISOPHANE [INJECTION] [Suspect]
     Indication: DIABETES MELLITUS
     Route: 065
     Dates: start: 20071106
  3. ROSIGLITAZONE MALEATE [Suspect]
     Route: 048
     Dates: end: 20071106
  4. METFORMIN [Concomitant]
     Indication: DIABETES MELLITUS
     Route: 065
     Dates: start: 20071106, end: 20071211

REACTIONS (2)
  - DRUG EXPOSURE DURING PREGNANCY [None]
  - FOETAL GROWTH RETARDATION [None]
